FAERS Safety Report 9373080 (Version 1)
Quarter: 2013Q2

REPORT INFORMATION
  Report Type: Spontaneous
  Country: US (occurrence: None)
  Receive Date: 20130627
  Receipt Date: 20130627
  Transmission Date: 20140414
  Serious: Yes (Life-Threatening, Hospitalization, Disabling, Other)
  Sender: FDA-Public Use
  Company Number: None

PATIENT
  Age: 42 Year
  Sex: Female
  Weight: 58.06 kg

DRUGS (1)
  1. METHYPREDNISOLONE [Suspect]
     Indication: SCIATICA
     Dosage: 1 VIAL  ONE TIME USE  INJECTION
     Dates: start: 20120831, end: 20120831

REACTIONS (11)
  - Meningitis fungal [None]
  - Cerebrovascular accident [None]
  - Aneurysm [None]
  - Impaired work ability [None]
  - Alopecia [None]
  - Intraspinal abscess [None]
  - Arachnoiditis [None]
  - Back pain [None]
  - Pain in extremity [None]
  - Nephropathy toxic [None]
  - Hepatotoxicity [None]
